FAERS Safety Report 10192948 (Version 1)
Quarter: 2014Q2

REPORT INFORMATION
  Report Type: Spontaneous
  Country: HR (occurrence: HR)
  Receive Date: 20140523
  Receipt Date: 20140523
  Transmission Date: 20141212
  Serious: Yes (Other)
  Sender: FDA-Public Use
  Company Number: HR-BAXTER-2014BAX026781

PATIENT
  Sex: Male

DRUGS (3)
  1. KIOVIG 100 MG/ ML OTOPINA ZA INFUZIJU [Suspect]
     Indication: IMMUNODEFICIENCY COMMON VARIABLE
     Route: 065
  2. ZOLOFT [Concomitant]
     Indication: DEPRESSION
     Route: 048
     Dates: start: 2010
  3. TRITACE [Concomitant]
     Indication: HYPERTENSION
     Route: 048
     Dates: start: 2006

REACTIONS (1)
  - Back pain [Recovered/Resolved]
